FAERS Safety Report 18434814 (Version 1)
Quarter: 2020Q4

REPORT INFORMATION
  Report Type: Spontaneous
  Country: US (occurrence: US)
  Receive Date: 20201028
  Receipt Date: 20201028
  Transmission Date: 20210114
  Serious: No
  Sender: FDA-Public Use
  Company Number: US-LUPIN PHARMACEUTICALS INC.-2019-08824

PATIENT
  Sex: Female
  Weight: 63.5 kg

DRUGS (5)
  1. PREMPRO [Concomitant]
     Active Substance: ESTROGENS, CONJUGATED\MEDROXYPROGESTERONE ACETATE
     Indication: HOT FLUSH
     Dosage: UNK, 0.3 MG/15 MG TABLET BY MOUTH
     Route: 048
     Dates: start: 2018
  2. DULOXETINE HYDROCHLORIDE. [Suspect]
     Active Substance: DULOXETINE HYDROCHLORIDE
     Indication: DEPRESSION
     Dosage: 60 MILLIGRAM, QD
     Route: 048
     Dates: start: 201908
  3. MEMANTINE. [Concomitant]
     Active Substance: MEMANTINE
     Indication: AMNESIA
     Dosage: 5 MILLIGRAM, QD
     Route: 048
  4. PLAVIX [Concomitant]
     Active Substance: CLOPIDOGREL BISULFATE
     Indication: CEREBROVASCULAR ACCIDENT
     Dosage: UNK UNK, QD, (75 MG TABLET CUT IN HALF TABLET ONCE A DAY)
     Route: 048
     Dates: start: 201707
  5. TOLTERODINE [Concomitant]
     Active Substance: TOLTERODINE
     Indication: INCONTINENCE
     Dosage: 4 MILLIGRAM, QD
     Route: 048

REACTIONS (1)
  - Aggression [Unknown]
